FAERS Safety Report 19164158 (Version 1)
Quarter: 2021Q2

REPORT INFORMATION
  Report Type: Spontaneous
  Country: US (occurrence: US)
  Receive Date: 20210421
  Receipt Date: 20210421
  Transmission Date: 20210717
  Serious: Yes (Hospitalization)
  Sender: FDA-Public Use
  Company Number: US-PFIZER INC-2021376028

PATIENT
  Age: 9 Year
  Sex: Female
  Weight: 52.16 kg

DRUGS (1)
  1. LORBRENA [Suspect]
     Active Substance: LORLATINIB
     Indication: BRAIN NEOPLASM MALIGNANT
     Dosage: 25 MG, 1X/DAY
     Route: 048
     Dates: start: 20201120, end: 2021

REACTIONS (7)
  - Oedema [Not Recovered/Not Resolved]
  - Off label use [Unknown]
  - Cough [Not Recovered/Not Resolved]
  - Blood cholesterol abnormal [Unknown]
  - Lung disorder [Unknown]
  - Fluid retention [Not Recovered/Not Resolved]
  - Swelling [Not Recovered/Not Resolved]

NARRATIVE: CASE EVENT DATE: 20201120
